FAERS Safety Report 15843797 (Version 11)
Quarter: 2021Q4

REPORT INFORMATION
  Report Type: Spontaneous
  Country: DE (occurrence: DE)
  Receive Date: 20190118
  Receipt Date: 20211119
  Transmission Date: 20220303
  Serious: Yes (Life-Threatening, Hospitalization, Other)
  Sender: FDA-Public Use
  Company Number: DE-AUROBINDO-AUR-APL-2017-04522

PATIENT
  Age: 16 Year
  Sex: Female

DRUGS (13)
  1. DICLOFENAC [Suspect]
     Active Substance: DICLOFENAC
     Indication: Analgesic therapy
     Dosage: 150 MILLIGRAM, QD (75 MG, BID 2 SEPARATED DOSES )
     Route: 048
  2. DICLOFENAC [Suspect]
     Active Substance: DICLOFENAC
     Indication: Postoperative analgesia
     Dosage: 75 MILLIGRAM, BID
     Route: 048
  3. DICLOFENAC [Suspect]
     Active Substance: DICLOFENAC
     Indication: Pain
  4. CLINDAMYCIN [Suspect]
     Active Substance: CLINDAMYCIN
     Indication: Antibiotic prophylaxis
     Dosage: 600 MILLIGRAM, QD
     Route: 048
  5. CLINDAMYCIN [Suspect]
     Active Substance: CLINDAMYCIN
     Dosage: 300 MILLIGRAM, Q8H (TID) 900 MG
     Route: 048
  6. CLINDAMYCIN [Suspect]
     Active Substance: CLINDAMYCIN
     Dosage: 900 MILLIGRAM, QD (300 MG, TID 3 SEPARATED DOSES)
     Route: 048
  7. CLINDAMYCIN [Suspect]
     Active Substance: CLINDAMYCIN
     Dosage: 300 MILLIGRAM
     Route: 048
  8. TAZOBACTAM [Suspect]
     Active Substance: TAZOBACTAM
     Indication: Product used for unknown indication
     Dosage: 1.5 GRAM, QD (0.5 G TID)
     Route: 042
  9. TAZOBACTAM [Suspect]
     Active Substance: TAZOBACTAM
     Dosage: UNK
  10. GENTAMICIN [Suspect]
     Active Substance: GENTAMICIN
     Indication: Product used for unknown indication
     Dosage: 320 MILLIGRAM, QD
     Route: 042
  11. GENTAMICIN [Suspect]
     Active Substance: GENTAMICIN
     Dosage: UNK
  12. PIPERACILLIN [Suspect]
     Active Substance: PIPERACILLIN
     Indication: Product used for unknown indication
     Dosage: 12 GRAM, QD (4 G, TID 3 SEPARATED DOSES   )
     Route: 042
  13. CLINDAMYCIN [Concomitant]
     Active Substance: CLINDAMYCIN
     Indication: Product used for unknown indication
     Dosage: 900 MILLIGRAM, QD (300 MILLIGRAM, 3 TIMES A DAY )

REACTIONS (19)
  - Peritonitis [Recovered/Resolved]
  - Gastrointestinal sounds abnormal [Recovered/Resolved]
  - Abdominal distension [Recovered/Resolved]
  - White blood cell count increased [Recovered/Resolved]
  - C-reactive protein increased [Recovered/Resolved]
  - General physical health deterioration [Recovered/Resolved]
  - Platelet count increased [Recovered/Resolved]
  - Prothrombin time prolonged [Recovered/Resolved]
  - Ill-defined disorder [Recovered/Resolved]
  - Skin lesion [Recovered/Resolved]
  - Large intestine perforation [Recovered/Resolved]
  - Haemoglobin decreased [Recovered/Resolved]
  - Heart rate increased [Recovered/Resolved]
  - Diarrhoea [Recovered/Resolved]
  - Abdominal pain [Recovered/Resolved]
  - Body temperature increased [Recovered/Resolved]
  - Leukocytosis [Recovered/Resolved]
  - Anaemia [Recovered/Resolved]
  - Pyrexia [Recovered/Resolved]

NARRATIVE: CASE EVENT DATE: 20030619
